FAERS Safety Report 23634402 (Version 1)
Quarter: 2024Q1

REPORT INFORMATION
  Report Type: Report from Study
  Country: US (occurrence: US)
  Receive Date: 20240314
  Receipt Date: 20240314
  Transmission Date: 20240410
  Serious: Yes (Hospitalization, Other)
  Sender: FDA-Public Use
  Company Number: US-ABBVIE-5676589

PATIENT
  Age: 76 Year
  Sex: Male

DRUGS (1)
  1. RINVOQ [Suspect]
     Active Substance: UPADACITINIB
     Indication: Rheumatoid arthritis
     Route: 048

REACTIONS (7)
  - Gastrointestinal disorder [Unknown]
  - Influenza [Not Recovered/Not Resolved]
  - Large intestine perforation [Unknown]
  - Gait inability [Unknown]
  - Memory impairment [Unknown]
  - Abdominal pain upper [Not Recovered/Not Resolved]
  - Large intestine infection [Unknown]

NARRATIVE: CASE EVENT DATE: 20240219
